FAERS Safety Report 6443639-4 (Version None)
Quarter: 2009Q4

REPORT INFORMATION
  Report Type: 
  Country: None (occurrence: None)
  Receive Date: 20091117
  Receipt Date: 20091112
  Transmission Date: 20100525
  Serious: Yes (Other)
  Sender: FDA-Public Use
  Company Number: DE-WYE-G04866209

PATIENT

DRUGS (1)
  1. TORISEL [Suspect]
     Indication: METASTATIC RENAL CELL CARCINOMA
     Dosage: UNKNOWN
     Route: 042
     Dates: start: 20090901, end: 20090101

REACTIONS (4)
  - DISEASE PROGRESSION [None]
  - LYMPHANGIOSIS CARCINOMATOSA [None]
  - PULMONARY ARTERY WALL HYPERTROPHY [None]
  - PULMONARY INFARCTION [None]
